FAERS Safety Report 7884405-2 (Version None)
Quarter: 2011Q4

REPORT INFORMATION
  Report Type: 
  Country: None (occurrence: None)
  Receive Date: 20111102
  Receipt Date: 20110829
  Transmission Date: 20120403
  Serious: No
  Sender: FDA-Public Use
  Company Number: US-ASTRAZENECA-2011SE51736

PATIENT
  Sex: Female
  Weight: 55.3 kg

DRUGS (4)
  1. METHYLPREDNISOLONE [Suspect]
     Route: 065
  2. LEVOTHYROXINE SODIUM [Concomitant]
  3. VANDETANIB [Suspect]
     Indication: THYROID CANCER
     Route: 048
  4. AMLODIPINE BESYLATE [Concomitant]

REACTIONS (4)
  - PULMONARY CONGESTION [None]
  - GAIT DISTURBANCE [None]
  - LUNG NEOPLASM [None]
  - DIZZINESS [None]
